FAERS Safety Report 8881116 (Version 1)
Quarter: 2012Q4

REPORT INFORMATION
  Report Type: 
  Country: US (occurrence: US)
  Receive Date: 20121101
  Receipt Date: 20121101
  Transmission Date: 20130627
  Serious: Yes (Other)
  Sender: FDA-Public Use
  Company Number: US-UCBSA-069631

PATIENT
  Age: 56 None
  Sex: Female

DRUGS (12)
  1. CIMZIA [Suspect]
     Indication: CROHN^S DISEASE
     Dates: start: 20120525, end: 20121018
  2. AMBIEN [Concomitant]
  3. ATENOLOL [Concomitant]
  4. CYMBALTA [Concomitant]
  5. ESTRADIOL [Concomitant]
  6. HYDROXYZINE [Concomitant]
     Indication: PRURITUS
  7. HYDROXYZINE [Concomitant]
     Indication: PRURITUS
     Dates: start: 201208
  8. INTERGA [Concomitant]
  9. NEXIUM [Concomitant]
  10. VITAMIN B12 [Concomitant]
  11. ZOFRAN [Concomitant]
  12. GINGER ROOT [Concomitant]

REACTIONS (4)
  - Papule [Unknown]
  - Skin hypertrophy [Unknown]
  - Pruritus [Unknown]
  - Skin haemorrhage [Unknown]
